FAERS Safety Report 7343085-5 (Version None)
Quarter: 2011Q1

REPORT INFORMATION
  Report Type: 
  Country: None (occurrence: None)
  Receive Date: 20110310
  Receipt Date: 20110303
  Transmission Date: 20110831
  Serious: Yes (Other)
  Sender: FDA-Public Use
  Company Number: IN-ROXANE LABORATORIES, INC.-2011-RO-00254RO

PATIENT
  Age: 62 Year
  Sex: Female

DRUGS (4)
  1. ROPINIROLE [Suspect]
     Indication: PARKINSONISM
     Dosage: 5 MG
  2. VALPROATE SODIUM [Suspect]
     Indication: BIPOLAR DISORDER
     Dosage: 1500 MG
  3. LITHIUM CARBONATE [Suspect]
     Indication: BIPOLAR DISORDER
  4. QUETIAPINE [Suspect]
     Indication: PSYCHOTIC DISORDER

REACTIONS (4)
  - PARKINSONISM [None]
  - ANTIPSYCHOTIC DRUG LEVEL INCREASED [None]
  - PSYCHOTIC DISORDER [None]
  - BIPOLAR DISORDER [None]
